FAERS Safety Report 24158898 (Version 1)
Quarter: 2024Q3

REPORT INFORMATION
  Report Type: Spontaneous
  Country: FR (occurrence: FR)
  Receive Date: 20240731
  Receipt Date: 20240731
  Transmission Date: 20241016
  Serious: Yes (Hospitalization)
  Sender: TEVA
  Company Number: None

PATIENT
  Age: 61 Year
  Sex: Male
  Weight: 108 kg

DRUGS (26)
  1. TRISENOX [Suspect]
     Active Substance: ARSENIC TRIOXIDE
     Indication: Acute myeloid leukaemia
     Route: 042
     Dates: start: 20231229, end: 20240113
  2. TRISENOX [Suspect]
     Active Substance: ARSENIC TRIOXIDE
     Indication: Acute myeloid leukaemia
     Route: 042
     Dates: start: 20231205, end: 20231225
  3. VITABACT [Concomitant]
     Active Substance: PICLOXYDINE DIHYDROCHLORIDE
     Indication: Product used for unknown indication
     Route: 047
     Dates: start: 20231223, end: 20231229
  4. URAPIDIL [Concomitant]
     Active Substance: URAPIDIL
     Indication: Hypertension
     Dosage: URAPIDIL VIATRIS LP
     Route: 048
     Dates: start: 20231202
  5. ONDANSETRON [Concomitant]
     Active Substance: ONDANSETRON
     Indication: Prophylaxis of nausea and vomiting
     Route: 042
     Dates: start: 20231201
  6. VALACYCLOVIR [Suspect]
     Active Substance: VALACYCLOVIR HYDROCHLORIDE
     Indication: Opportunistic infection prophylaxis
     Route: 048
     Dates: start: 20231228
  7. VALACYCLOVIR [Suspect]
     Active Substance: VALACYCLOVIR HYDROCHLORIDE
     Indication: Opportunistic infection prophylaxis
     Route: 048
     Dates: start: 20231202, end: 20231226
  8. OXAZEPAM [Concomitant]
     Active Substance: OXAZEPAM
     Indication: Agitation
     Route: 048
     Dates: start: 20231201
  9. REFRESH CLASSIC [Concomitant]
     Active Substance: POLYVINYL ALCOHOL\POVIDONE
     Indication: Dry eye
     Dosage: EYE DROPS IN SINGLE-DOSE CONTAINER
     Route: 047
     Dates: start: 20231223, end: 20231230
  10. MONTMORILLONITE [Concomitant]
     Active Substance: MONTMORILLONITE
     Indication: Diarrhoea
     Dosage: DIOSMECTITE VIATRIS, POWDER FOR ORAL SUSPENSION IN SACHET
     Route: 048
     Dates: start: 20231201
  11. ACETAMINOPHEN [Concomitant]
     Active Substance: ACETAMINOPHEN
     Indication: Pain
     Route: 042
     Dates: start: 20231201
  12. TRESIBA [Concomitant]
     Active Substance: INSULIN DEGLUDEC
     Indication: Type 1 diabetes mellitus
     Dosage: 200 UNITS/ML
     Route: 058
     Dates: start: 20231201
  13. TRAMADOL HYDROCHLORIDE [Concomitant]
     Active Substance: TRAMADOL HYDROCHLORIDE
     Indication: Pain
     Dosage: 100 MG/2 ML
     Route: 042
     Dates: start: 20231211
  14. RACECADOTRIL ARROW [Concomitant]
     Indication: Diarrhoea
     Route: 048
     Dates: start: 20231201
  15. METOCLOPRAMIDE HYDROCHLORIDE [Concomitant]
     Active Substance: METOCLOPRAMIDE HYDROCHLORIDE
     Indication: Prophylaxis of nausea and vomiting
     Dosage: 10 MG/2 ML, SOLUTION FOR INJECTION IN AMPOULE
     Route: 042
     Dates: start: 20231201
  16. INSULIN ASPARTE SANOFI [Concomitant]
     Indication: Type 1 diabetes mellitus
     Dosage: 100 UNITS/ML,
     Route: 058
     Dates: start: 20231202
  17. CHLORHEXIDINE CHLOROBUTANOL [Concomitant]
     Indication: Mucosal inflammation
     Dosage: 0.5 ML/0.5 G PER 100 ML, SOLUTION IN BOTTLE
     Route: 002
     Dates: start: 20231202
  18. VESANOID [Suspect]
     Active Substance: TRETINOIN
     Indication: Acute myeloid leukaemia
     Route: 048
     Dates: start: 20231228, end: 20240110
  19. VESANOID [Suspect]
     Active Substance: TRETINOIN
     Indication: Acute myeloid leukaemia
     Route: 048
     Dates: start: 20231130, end: 20231226
  20. NEBIVOLOL [Concomitant]
     Active Substance: NEBIVOLOL
     Indication: Hypertension
     Dosage: NEBIVOLOL VIATRIS, QUADRISCORED TABLET
     Route: 048
  21. ENALAPRIL [Concomitant]
     Active Substance: ENALAPRIL
     Indication: Hypertension
     Dosage: SCORED TABLET
     Route: 048
  22. ATORVASTATIN CALCIUM [Concomitant]
     Active Substance: ATORVASTATIN CALCIUM
     Indication: Dyslipidaemia
     Dosage: ATORVASTATIN EG LABO
     Route: 048
  23. ACUPAN [Concomitant]
     Active Substance: NEFOPAM HYDROCHLORIDE
     Indication: Pain
     Route: 042
     Dates: start: 20231201
  24. SODIUM BICARBONATE [Concomitant]
     Active Substance: SODIUM BICARBONATE
     Indication: Dry mouth
     Route: 002
     Dates: start: 20231202
  25. LERCANIDIPINE [Concomitant]
     Active Substance: LERCANIDIPINE
     Indication: Hypertension
     Dosage: LERCANIDIPINE ARROW
     Route: 048
  26. NICARDIPINE HYDROCHLORIDE [Concomitant]
     Active Substance: NICARDIPINE HYDROCHLORIDE
     Indication: Hypertension
     Route: 048
     Dates: start: 20231203

REACTIONS (1)
  - Acute kidney injury [Recovered/Resolved]

NARRATIVE: CASE EVENT DATE: 20231225
